FAERS Safety Report 7631690-8 (Version None)
Quarter: 2011Q3

REPORT INFORMATION
  Report Type: 
  Country: None (occurrence: None)
  Receive Date: 20110725
  Receipt Date: 20110218
  Transmission Date: 20111222
  Serious: No
  Sender: FDA-Public Use
  Company Number: US-BRISTOL-MYERS SQUIBB COMPANY-15557994

PATIENT
  Age: 81 Year
  Sex: Female
  Weight: 75 kg

DRUGS (3)
  1. SPIRIVA [Concomitant]
  2. WARFARIN SODIUM [Suspect]
     Dosage: 1 D.F:7.5MG AND 5.0MG ALTERNATING DAYS
  3. ADVAIR DISKUS 100/50 [Concomitant]

REACTIONS (2)
  - SLEEP PARALYSIS [None]
  - INTERNATIONAL NORMALISED RATIO INCREASED [None]
